FAERS Safety Report 13113922 (Version 2)
Quarter: 2017Q3

REPORT INFORMATION
  Report Type: Report from Study
  Country: BR (occurrence: BR)
  Receive Date: 20170113
  Receipt Date: 20170804
  Transmission Date: 20171127
  Serious: Yes (Other)
  Sender: FDA-Public Use
  Company Number: BR-JNJFOC-20160518952

PATIENT
  Sex: Female

DRUGS (3)
  1. STELARA [Suspect]
     Active Substance: USTEKINUMAB
     Indication: PSORIASIS
     Dosage: RETREATMENT APPLICATION PERFORMED AT 0 AND 4 WEEKS
     Route: 058
     Dates: start: 20150119, end: 201604
  2. STELARA [Suspect]
     Active Substance: USTEKINUMAB
     Indication: PSORIASIS
     Route: 058
  3. STELARA [Suspect]
     Active Substance: USTEKINUMAB
     Indication: PSORIASIS
     Route: 058
     Dates: start: 20150119

REACTIONS (3)
  - Drug ineffective [Not Recovered/Not Resolved]
  - Exposure during pregnancy [Recovered/Resolved]
  - Psoriasis [Not Recovered/Not Resolved]
